FAERS Safety Report 4872913-8 (Version None)
Quarter: 2006Q1

REPORT INFORMATION
  Report Type: 
  Country: None (occurrence: None)
  Receive Date: 20060105
  Receipt Date: 20050119
  Transmission Date: 20060701
  Serious: No
  Sender: FDA-Public Use
  Company Number: US-BRISTOL-MYERS SQUIBB COMPANY-12833521

PATIENT
  Age: 44 Year
  Sex: Male

DRUGS (4)
  1. SERZONE [Suspect]
     Route: 048
  2. DIAZEPAM [Concomitant]
  3. IMIPRAMINE [Concomitant]
  4. ZOLOFT [Concomitant]

REACTIONS (1)
  - HEPATITIS [None]
